FAERS Safety Report 6357112-5 (Version None)
Quarter: 2009Q3

REPORT INFORMATION
  Report Type: 
  Country: None (occurrence: None)
  Receive Date: 20090915
  Receipt Date: 20090904
  Transmission Date: 20100115
  Serious: Yes (Hospitalization)
  Sender: FDA-Public Use
  Company Number: FR-MERCK-0909FRA00012

PATIENT
  Age: 81 Year
  Sex: Male

DRUGS (3)
  1. INVANZ [Suspect]
     Indication: FOOT DEFORMITY
     Route: 042
     Dates: start: 20090703, end: 20090719
  2. INSULIN [Concomitant]
     Indication: TYPE 2 DIABETES MELLITUS
     Route: 065
  3. HEPARIN [Concomitant]
     Route: 065

REACTIONS (1)
  - ENCEPHALOPATHY [None]
